FAERS Safety Report 20484235 (Version 1)
Quarter: 2022Q1

REPORT INFORMATION
  Report Type: Other
  Country: IN (occurrence: None)
  Receive Date: 20220217
  Receipt Date: 20220217
  Transmission Date: 20220423
  Serious: Yes (Other)
  Sender: FDA-Public Use
  Company Number: IN-ROCHE-3028468

PATIENT

DRUGS (1)
  1. BEVACIZUMAB [Suspect]
     Active Substance: BEVACIZUMAB
     Indication: Retinopathy of prematurity
     Dosage: 0.625 MG/0.025 ML) WITHIN 24 H OF DIAGNOSIS.
     Route: 050

REACTIONS (3)
  - Retinal detachment [Unknown]
  - Off label use [Unknown]
  - Off label use [Unknown]
